FAERS Safety Report 4916618-3 (Version None)
Quarter: 2006Q1

REPORT INFORMATION
  Report Type: 
  Country: None (occurrence: None)
  Receive Date: 20060220
  Receipt Date: 20060210
  Transmission Date: 20060701
  Serious: Yes (Death)
  Sender: FDA-Public Use
  Company Number: NL-GLAXOSMITHKLINE-B0412327A

PATIENT
  Age: 13 Year
  Sex: Female

DRUGS (3)
  1. SALBUTAMOL [Suspect]
     Route: 055
  2. PREDNISONE [Concomitant]
     Dosage: 30MG PER DAY
     Route: 065
  3. AMOXICILLIN [Concomitant]
     Route: 065

REACTIONS (11)
  - APNOEA [None]
  - BRADYCARDIA [None]
  - BRAIN DEATH [None]
  - COUGH [None]
  - DRUG INEFFECTIVE [None]
  - METABOLIC ACIDOSIS [None]
  - MYDRIASIS [None]
  - PULSE ABSENT [None]
  - PUPIL FIXED [None]
  - TOTAL LUNG CAPACITY INCREASED [None]
  - VENTRICULAR FIBRILLATION [None]
